FAERS Safety Report 10269197 (Version 1)
Quarter: 2014Q2

REPORT INFORMATION
  Report Type: Spontaneous
  Country: US (occurrence: US)
  Receive Date: 20140630
  Receipt Date: 20140630
  Transmission Date: 20141212
  Serious: No
  Sender: FDA-Public Use
  Company Number: US-009507513-1406USA001345

PATIENT
  Sex: Male

DRUGS (8)
  1. VICTRELIS [Suspect]
     Indication: HEPATITIS C
     Dosage: 200 MG,  5 IN 8 HOURS
     Route: 048
     Dates: start: 201308
  2. REBETOL [Suspect]
     Indication: HEPATITIS C
     Dosage: 200 MG, TWICE IN 24HRS
     Route: 048
     Dates: start: 201308
  3. PEGASYS [Suspect]
     Indication: HEPATITIS C
     Dosage: 180 MICROGRAM, QW
     Route: 058
     Dates: start: 201308
  4. LUCENTIS [Suspect]
     Indication: MACULAR DEGENERATION
     Dosage: UNK
     Dates: start: 201405
  5. LUCENTIS [Suspect]
     Indication: EYE HAEMORRHAGE
  6. PAXIL [Concomitant]
     Indication: DEPRESSION
  7. OMEPRAZOLE [Concomitant]
  8. NOVO-CYCLOPRINE [Concomitant]

REACTIONS (9)
  - Tooth loss [Recovered/Resolved]
  - Feeling abnormal [Recovered/Resolved]
  - Formication [Recovered/Resolved]
  - Visual impairment [Recovered/Resolved]
  - Nausea [Recovered/Resolved]
  - Confusional state [Not Recovered/Not Resolved]
  - Memory impairment [Not Recovered/Not Resolved]
  - Tooth fracture [Unknown]
  - Malaise [Unknown]
